FAERS Safety Report 8185807-X (Version None)
Quarter: 2012Q1

REPORT INFORMATION
  Report Type: 
  Country: None (occurrence: None)
  Receive Date: 20120305
  Receipt Date: 20120228
  Transmission Date: 20120608
  Serious: No
  Sender: FDA-Public Use
  Company Number: US-PFIZER INC-2012052981

PATIENT
  Sex: Female
  Weight: 52.154 kg

DRUGS (8)
  1. CHANTIX [Suspect]
     Indication: SMOKING CESSATION THERAPY
     Dosage: 0.5 MG, 1X/DAY
     Route: 048
     Dates: start: 20110101
  2. IBUPROFEN [Concomitant]
     Indication: HEADACHE
     Dosage: UNK
  3. IBUPROFEN [Concomitant]
     Indication: NERVOUSNESS
  4. IBUPROFEN [Concomitant]
     Indication: PSYCHOMOTOR HYPERACTIVITY
  5. VITAMIN B-12 [Concomitant]
     Dosage: UNK
  6. VITAMIN B6 [Concomitant]
     Dosage: UNK
  7. EFFEXOR XR [Suspect]
     Indication: DEPRESSION
     Dosage: 150 MG, 2X/DAY
     Route: 048
     Dates: start: 20100101
  8. CHANTIX [Suspect]
     Dosage: 1 MG, 2X/DAY
     Route: 048
     Dates: end: 20120101

REACTIONS (2)
  - WEIGHT DECREASED [None]
  - TONGUE DISORDER [None]
